FAERS Safety Report 13150575 (Version 1)
Quarter: 2017Q1

REPORT INFORMATION
  Report Type: Spontaneous
  Country: US (occurrence: US)
  Receive Date: 20170125
  Receipt Date: 20170125
  Transmission Date: 20170428
  Serious: No
  Sender: FDA-Public Use
  Company Number: US-DSJP-DSU-2016-143853

PATIENT
  Sex: Female

DRUGS (1)
  1. SAVAYSA [Suspect]
     Active Substance: EDOXABAN TOSYLATE
     Indication: PRODUCT USED FOR UNKNOWN INDICATION
     Dosage: UNK

REACTIONS (7)
  - Cough [Unknown]
  - Malaise [Unknown]
  - Asthma [Unknown]
  - Pyrexia [Unknown]
  - Hypersomnia [Unknown]
  - Nasal congestion [Unknown]
  - Dyspnoea [Unknown]
